FAERS Safety Report 7997689 (Version 3)
Quarter: 2013Q1

REPORT INFORMATION
  Report Type: Report from Study
  Country: CA (occurrence: CA)
  Receive Date: 20110620
  Receipt Date: 20130328
  Transmission Date: 20140127
  Serious: Yes (Hospitalization)
  Sender: FDA-Public Use
  Company Number: PHHO2011CA10290

PATIENT
  Age: 44 Year
  Sex: Female
  Weight: 49.7 kg

DRUGS (6)
  1. CERTICAN [Suspect]
     Indication: RENAL TRANSPLANT
     Dosage: 2.5 MG, BID
     Route: 048
     Dates: start: 20110215, end: 20110617
  2. PROGRAF [Suspect]
     Indication: RENAL TRANSPLANT
     Dosage: 7.5 MG, DAILY
     Route: 048
     Dates: start: 20110215
  3. PREDNISONE [Suspect]
     Indication: RENAL TRANSPLANT
     Dosage: 5 MG, QD
     Route: 048
     Dates: start: 20110221
  4. PREDNISONE [Suspect]
     Dosage: 10 MG, QD
     Dates: start: 20110618
  5. PANTOLOC [Concomitant]
     Indication: PROPHYLAXIS
  6. SEPTRA [Concomitant]
     Indication: INFECTION PROPHYLAXIS

REACTIONS (1)
  - Gastrointestinal inflammation [Recovered/Resolved]
